FAERS Safety Report 19693625 (Version 2)
Quarter: 2022Q3

REPORT INFORMATION
  Report Type: Spontaneous
  Country: GB (occurrence: GB)
  Receive Date: 20210813
  Receipt Date: 20220818
  Transmission Date: 20221027
  Serious: Yes (Other)
  Sender: FDA-Public Use
  Company Number: GB-LUPIN PHARMACEUTICALS INC.-2021-14446

PATIENT
  Age: 47 Year
  Sex: Female

DRUGS (1)
  1. HYDROXYCHLOROQUINE [Suspect]
     Active Substance: HYDROXYCHLOROQUINE
     Indication: Rheumatic disorder
     Dosage: 400 MILLIGRAM, QD
     Route: 065

REACTIONS (2)
  - Maculopathy [Unknown]
  - Visual field defect [Unknown]
